FAERS Safety Report 25879807 (Version 3)
Quarter: 2025Q4

REPORT INFORMATION
  Report Type: Report from Study
  Country: CA (occurrence: CA)
  Receive Date: 20251003
  Receipt Date: 20251022
  Transmission Date: 20260118
  Serious: Yes (Hospitalization)
  Sender: ABBVIE
  Company Number: CA-ABBVIE-6486639

PATIENT
  Age: 85 Year
  Sex: Male

DRUGS (2)
  1. LUPRON [Suspect]
     Active Substance: LEUPROLIDE ACETATE
     Indication: Prostate cancer
     Dosage: FORM STRENGTH- 30 MG, LAST ADMIN-2025
     Route: 030
     Dates: start: 20250605
  2. LUPRON [Suspect]
     Active Substance: LEUPROLIDE ACETATE
     Dosage: FIRST ADMIN-2025.
     Route: 030

REACTIONS (2)
  - Hip fracture [Recovering/Resolving]
  - Liquid product physical issue [Unknown]

NARRATIVE: CASE EVENT DATE: 20250101
